FAERS Safety Report 8095590-4 (Version None)
Quarter: 2011Q4

REPORT INFORMATION
  Report Type: 
  Country: None (occurrence: None)
  Receive Date: 20111222
  Receipt Date: 20111109
  Transmission Date: 20120403
  Serious: Yes (Hospitalization)
  Sender: FDA-Public Use
  Company Number: UTC-0111169

PATIENT
  Age: 72 Year
  Sex: Female
  Weight: 52.7 kg

DRUGS (5)
  1. REVATIO (SILDENAFIL CITRATE) (UNKNOWN) [Concomitant]
  2. DIURETICS (DIURETICS) (UNKNOWN) [Concomitant]
  3. ACETAMINOPHEN (PARACETAMOL) (500 MILLIGRAM, CAPSULE) [Concomitant]
  4. LETAIRIS (AMBRISENTAN) (UNKNOWN) [Concomitant]
  5. TYVASO [Suspect]
     Indication: PULMONARY ARTERIAL HYPERTENSION
     Dosage: 18 TO 36 MICROGRAMS (4 IN 1 D), INHALATION
     Route: 055
     Dates: start: 20101018

REACTIONS (3)
  - DRY MOUTH [None]
  - HAEMOGLOBIN DECREASED [None]
  - GASTRIC ANTRAL VASCULAR ECTASIA [None]
